FAERS Safety Report 15538336 (Version 4)
Quarter: 2018Q4

REPORT INFORMATION
  Report Type: Report from Study
  Country: US (occurrence: US)
  Receive Date: 20181022
  Receipt Date: 20181212
  Transmission Date: 20190205
  Serious: No
  Sender: FDA-Public Use
  Company Number: PHEH2018US044098

PATIENT
  Sex: Male

DRUGS (3)
  1. ENTRESTO [Suspect]
     Active Substance: SACUBITRIL\VALSARTAN
     Indication: CARDIAC FAILURE CONGESTIVE
     Dosage: 2 DF, QD
     Route: 048
  2. ENTRESTO [Suspect]
     Active Substance: SACUBITRIL\VALSARTAN
     Dosage: 0.5 DF, BID
     Route: 048
  3. ENTRESTO [Suspect]
     Active Substance: SACUBITRIL\VALSARTAN
     Dosage: 1 DF, QD SPLIT INTO HALF
     Route: 065

REACTIONS (11)
  - Influenza [Recovering/Resolving]
  - Sluggishness [Unknown]
  - Fatigue [Unknown]
  - Pollakiuria [Unknown]
  - Fluid retention [Unknown]
  - Product prescribing error [Unknown]
  - Malaise [Unknown]
  - Wrong technique in product usage process [Unknown]
  - Electrolyte imbalance [Unknown]
  - Respiratory disorder [Unknown]
  - Cough [Unknown]
